FAERS Safety Report 9690470 (Version 3)
Quarter: 2013Q4

REPORT INFORMATION
  Report Type: Spontaneous
  Country: CN (occurrence: CN)
  Receive Date: 20131115
  Receipt Date: 20131128
  Transmission Date: 20140711
  Serious: Yes (Life-Threatening)
  Sender: FDA-Public Use
  Company Number: CN-ASTRAZENECA-2013SE75808

PATIENT
  Sex: Male

DRUGS (2)
  1. PULMICORT RESPULES [Suspect]
     Indication: CHRONIC OBSTRUCTIVE PULMONARY DISEASE
     Route: 055
     Dates: start: 20131012, end: 20131012
  2. AMBROXOL [Suspect]
     Indication: ASTHMA

REACTIONS (3)
  - Cardiac failure [Recovered/Resolved]
  - Hypersensitivity [Recovering/Resolving]
  - Wheezing [Recovering/Resolving]
